FAERS Safety Report 13716668 (Version 2)
Quarter: 2017Q3

REPORT INFORMATION
  Report Type: Spontaneous
  Country: US (occurrence: US)
  Receive Date: 20170705
  Receipt Date: 20170718
  Transmission Date: 20171127
  Serious: No
  Sender: FDA-Public Use
  Company Number: US-TEVA-783875ACC

PATIENT
  Age: 52 Year
  Sex: Female

DRUGS (1)
  1. PARAGARD T 380A [Suspect]
     Active Substance: COPPER
     Dosage: INSERTED 10 YEARS PRIOR
     Route: 065

REACTIONS (2)
  - Device breakage [Not Recovered/Not Resolved]
  - Embedded device [Unknown]

NARRATIVE: CASE EVENT DATE: 20170626
